FAERS Safety Report 8468083 (Version 6)
Quarter: 2013Q4

REPORT INFORMATION
  Report Type: Report from Study
  Country: GB (occurrence: GB)
  Receive Date: 20120320
  Receipt Date: 20131031
  Transmission Date: 20140711
  Serious: Yes (Hospitalization)
  Sender: FDA-Public Use
  Company Number: GB-009507513-1203USA01997

PATIENT
  Age: 55 Year
  Sex: Male
  Weight: 71.4 kg

DRUGS (12)
  1. DECADRON TABLETS [Suspect]
     Indication: PLASMA CELL MYELOMA
     Dosage: 160 MG, QM
     Route: 048
     Dates: start: 20100927, end: 20101017
  2. DECADRON TABLETS [Suspect]
     Dosage: 160 MG, QM
     Route: 048
     Dates: start: 20101018, end: 20101109
  3. DOXORUBICIN [Suspect]
     Indication: PLASMA CELL MYELOMA
     Dosage: 64 MG, QM
     Route: 042
     Dates: start: 20100927, end: 20101017
  4. DOXORUBICIN [Suspect]
     Dosage: 64 MG, QD
     Route: 042
     Dates: start: 20101018, end: 20101109
  5. VELCADE [Suspect]
     Indication: PLASMA CELL MYELOMA
     Dosage: 2.4 MG/M2, ON DAY 1, 4, 8, 11
     Route: 042
     Dates: start: 20100927, end: 20101017
  6. VELCADE [Suspect]
     Dosage: 2.4 MG/M2, ON DAY 1, 4, 8, 11
     Route: 042
     Dates: start: 20101018, end: 20101109
  7. AMOXICILLIN [Concomitant]
     Indication: ANTI-INFECTIVE THERAPY
     Route: 048
     Dates: start: 20101025
  8. CLEXANE (ENOXAPARIN SODIUM) [Concomitant]
     Indication: PROPHYLAXIS
     Route: 058
     Dates: start: 20101109
  9. FUROSEMIDE [Concomitant]
     Indication: POLYURIA
     Route: 042
     Dates: start: 20101111, end: 20101112
  10. FUROSEMIDE [Concomitant]
     Route: 048
     Dates: start: 20101111
  11. GABAPENTIN [Concomitant]
     Indication: ANALGESIC THERAPY
     Route: 048
     Dates: start: 20101024
  12. PARACETAMOL [Concomitant]
     Indication: ANALGESIC THERAPY
     Route: 048
     Dates: start: 20101025

REACTIONS (3)
  - Plasma cell myeloma [Unknown]
  - Diarrhoea [Recovered/Resolved]
  - Drug ineffective [Unknown]
